FAERS Safety Report 12057576 (Version 2)
Quarter: 2016Q2

REPORT INFORMATION
  Report Type: Spontaneous
  Country: FR (occurrence: FR)
  Receive Date: 20160209
  Receipt Date: 20160406
  Transmission Date: 20160815
  Serious: Yes (Hospitalization, Other)
  Sender: FDA-Public Use
  Company Number: FR-ASTRAZENECA-2016SE12553

PATIENT
  Age: 24452 Day
  Sex: Female

DRUGS (7)
  1. ACEBUTOLOL [Concomitant]
     Active Substance: ACEBUTOLOL
     Route: 048
  2. GLUCOPHAGE [Concomitant]
     Active Substance: METFORMIN HYDROCHLORIDE
     Route: 048
  3. MOPRAL [Suspect]
     Active Substance: OMEPRAZOLE SODIUM
     Route: 048
  4. RISPERDAL [Concomitant]
     Active Substance: RISPERIDONE
     Route: 048
  5. SERESTA [Concomitant]
     Active Substance: OXAZEPAM
     Route: 048
  6. KARDEGIC [Concomitant]
     Active Substance: ASPIRIN LYSINE
     Route: 048
  7. CRESTOR [Concomitant]
     Active Substance: ROSUVASTATIN CALCIUM
     Route: 048

REACTIONS (11)
  - Abnormal behaviour [Unknown]
  - Hyponatraemia [Recovered/Resolved]
  - Hypoosmolar state [Unknown]
  - Hypochloraemia [Unknown]
  - Vomiting [Unknown]
  - Cough [Unknown]
  - Pneumonia aspiration [Unknown]
  - Pyrexia [Unknown]
  - Altered state of consciousness [Unknown]
  - Polydipsia [Unknown]
  - Bronchial obstruction [Unknown]

NARRATIVE: CASE EVENT DATE: 20160119
